APPROVED DRUG PRODUCT: FLUOROURACIL
Active Ingredient: FLUOROURACIL
Strength: 5%
Dosage Form/Route: SOLUTION;TOPICAL
Application: A215612 | Product #001 | TE Code: AT
Applicant: ENCUBE ETHICALS PRIVATE LTD
Approved: Nov 2, 2023 | RLD: No | RS: No | Type: RX